FAERS Safety Report 8882228 (Version 2)
Quarter: 2013Q1

REPORT INFORMATION
  Report Type: Spontaneous
  Country: FI (occurrence: FI)
  Receive Date: 20121105
  Receipt Date: 20130205
  Transmission Date: 20140127
  Serious: Yes (Death, Other)
  Sender: FDA-Public Use
  Company Number: FI-JNJFOC-20121101099

PATIENT
  Age: 80 Year
  Sex: Male

DRUGS (5)
  1. XARELTO [Suspect]
     Indication: THROMBOSIS PROPHYLAXIS
     Route: 048
     Dates: start: 2011
  2. XARELTO [Suspect]
     Indication: HIP ARTHROPLASTY
     Route: 048
     Dates: start: 2011
  3. UNFRACTIONATED HEPARIN [Concomitant]
     Indication: POSTOPERATIVE CARE
     Route: 065
     Dates: start: 2011, end: 2011
  4. FINASTERIDE [Concomitant]
     Route: 065
  5. PRIMASPAN [Concomitant]
     Route: 065

REACTIONS (4)
  - Ulcer [Fatal]
  - Melaena [Unknown]
  - Haemoglobin decreased [Unknown]
  - Thrombocytosis [Unknown]
